FAERS Safety Report 18474327 (Version 1)
Quarter: 2020Q4

REPORT INFORMATION
  Report Type: Spontaneous
  Country: FR (occurrence: FR)
  Receive Date: 20201106
  Receipt Date: 20201106
  Transmission Date: 20210114
  Serious: Yes (Hospitalization)
  Sender: FDA-Public Use
  Company Number: FR-009507513-2011FRA001146

PATIENT
  Age: 56 Year
  Sex: Male
  Weight: 90 kg

DRUGS (11)
  1. VALIUM [Concomitant]
     Active Substance: DIAZEPAM
     Route: 048
  2. BISOCE [Concomitant]
     Active Substance: BISOPROLOL
     Route: 048
     Dates: start: 20200207
  3. KARDEGIC [Concomitant]
     Active Substance: ASPIRIN DL-LYSINE
     Route: 048
  4. GABAPENTIN. [Concomitant]
     Active Substance: GABAPENTIN
     Dosage: 3 DOSAGE FORM, QD
     Route: 048
  5. THERALENE [Concomitant]
     Active Substance: TRIMEPRAZINE
     Route: 048
  6. ROSUVASTATINE [Concomitant]
     Active Substance: ROSUVASTATIN
     Route: 048
  7. ISENTRESS [Suspect]
     Active Substance: RALTEGRAVIR POTASSIUM
     Indication: HIV INFECTION
     Dosage: 800 MILLIGRAM, QD
     Route: 048
     Dates: start: 20070831, end: 20201003
  8. INTELENCE [Suspect]
     Active Substance: ETRAVIRINE
     Indication: HIV INFECTION
     Dosage: 400 MILLIGRAM, QD
     Route: 048
     Dates: start: 20070831, end: 20201003
  9. LORAZEPAM. [Concomitant]
     Active Substance: LORAZEPAM
     Route: 048
  10. TRIATEC (RAMIPRIL) [Concomitant]
     Active Substance: RAMIPRIL
     Route: 048
  11. BRILIQUE [Concomitant]
     Active Substance: TICAGRELOR
     Route: 048

REACTIONS (1)
  - Pancreatitis acute [Recovered/Resolved]

NARRATIVE: CASE EVENT DATE: 20201002
